FAERS Safety Report 6159652-0 (Version None)
Quarter: 2009Q2

REPORT INFORMATION
  Report Type: 
  Country: None (occurrence: None)
  Receive Date: 20090415
  Receipt Date: 20090330
  Transmission Date: 20091009
  Serious: Yes (Death, Hospitalization)
  Sender: FDA-Public Use
  Company Number: 200828409GPV

PATIENT
  Age: 48 Year
  Sex: Male

DRUGS (6)
  1. FLUDARA [Suspect]
     Indication: CHRONIC LYMPHOCYTIC LEUKAEMIA
     Dosage: ORAL, 80 MG ORAL
     Route: 048
     Dates: start: 20080901, end: 20080903
  2. FLUDARA [Suspect]
     Indication: CHRONIC LYMPHOCYTIC LEUKAEMIA
     Dosage: ORAL, 80 MG ORAL
     Route: 048
     Dates: start: 20080325
  3. CAMPATH [Suspect]
     Indication: CHRONIC LYMPHOCYTIC LEUKAEMIA
     Dosage: SUBCUTANEOUS, 30 MG SUBCUTANEOUS
     Route: 058
     Dates: start: 20080901, end: 20080903
  4. CAMPATH [Suspect]
     Indication: CHRONIC LYMPHOCYTIC LEUKAEMIA
     Dosage: SUBCUTANEOUS, 30 MG SUBCUTANEOUS
     Route: 058
     Dates: start: 20080325
  5. CYCLOPHOSPHAMIDE [Suspect]
     Indication: CHRONIC LYMPHOCYTIC LEUKAEMIA
     Dosage: ORAL, 500 MG ORAL
     Route: 048
     Dates: start: 20080901, end: 20080903
  6. CYCLOPHOSPHAMIDE [Suspect]
     Indication: CHRONIC LYMPHOCYTIC LEUKAEMIA
     Dosage: ORAL, 500 MG ORAL
     Route: 048
     Dates: start: 20080325

REACTIONS (16)
  - ABDOMINAL TENDERNESS [None]
  - BLOOD PRESSURE SYSTOLIC INCREASED [None]
  - BONE ABSCESS [None]
  - BONE MARROW FAILURE [None]
  - BRAIN ABSCESS [None]
  - BUNDLE BRANCH BLOCK RIGHT [None]
  - CELLULITIS [None]
  - HEPATOSPLENOMEGALY [None]
  - MUCORMYCOSIS [None]
  - OPPORTUNISTIC INFECTION [None]
  - ORAL CANDIDIASIS [None]
  - PNEUMOCOCCAL SEPSIS [None]
  - PNEUMONIA PNEUMOCOCCAL [None]
  - SEPTIC SHOCK [None]
  - SINUS TACHYCARDIA [None]
  - SKIN NECROSIS [None]
